FAERS Safety Report 6189885-9 (Version None)
Quarter: 2009Q2

REPORT INFORMATION
  Report Type: 
  Country: None (occurrence: None)
  Receive Date: 20090514
  Receipt Date: 20090501
  Transmission Date: 20091009
  Serious: Yes (Hospitalization)
  Sender: FDA-Public Use
  Company Number: US-ROCHE-630754

PATIENT
  Sex: Female
  Weight: 89 kg

DRUGS (23)
  1. ENFUVIRTIDE [Suspect]
     Indication: HIV INFECTION
     Route: 058
     Dates: start: 20080522
  2. RALTEGRAVIR [Suspect]
     Indication: HIV INFECTION
     Route: 048
     Dates: start: 20080522
  3. DARUNAVIR [Suspect]
     Indication: HIV INFECTION
     Route: 048
     Dates: start: 20070607
  4. RITONAVIR [Suspect]
     Indication: HIV INFECTION
     Route: 048
     Dates: start: 20060807
  5. ETRAVIRINE [Suspect]
     Indication: HIV INFECTION
     Route: 048
     Dates: start: 20080522
  6. LANTUS [Concomitant]
     Dosage: FREQUENCY: HS AT BEDTIME, LAST DOSE ON 21 APRIL 2009.
     Route: 058
  7. BACTRIM [Concomitant]
     Dosage: FREQUENCY: QD EVERY DAY, LAST DOSE ON 21 APRIL 2009.
     Route: 048
  8. GARDASIL [Concomitant]
     Dosage: SCHEDULED FOR 3 VACCINATIONS: FIRST ON 23 FEB 2009, SECOND SCHEDULED ON 28 APRIL 2009.
     Route: 030
  9. NOVOLOG [Concomitant]
     Dosage: FREQUENCY: BEFORE MEALS, LAST DOSE ON 21 APRIL 2009.
     Route: 058
  10. AZMACORT [Concomitant]
     Indication: ASTHMA
     Dosage: LAST DOSE ON 21 APRIL 2009.
     Route: 048
  11. ACTOS [Concomitant]
     Dosage: LAST DOSE ON 21 APRIL 2009.
     Route: 048
  12. METFORMIN HCL [Concomitant]
     Dosage: LAST DOSE ON 21 APRIL 2009.
     Route: 048
  13. HYDROCHLOROTHIAZIDE [Concomitant]
     Indication: HYPERTENSION
     Dosage: DURATION: 4.5 YEARS, FREQUENCY: QD, EVERYDAY, LAST DOSE ON 21 APRIL 2009.
     Route: 048
  14. NORVASC [Concomitant]
     Indication: HYPERTENSION
     Dosage: FREQUENCY: QD, EVERYDAY, LAST DOSE ON 21 APRIL 2009.
     Route: 048
  15. CLONIDINE [Concomitant]
     Indication: HYPERTENSION
     Dosage: LAST DOSE ON 21 APRIL 2009.
     Route: 048
  16. SINGULAIR [Concomitant]
     Indication: ASTHMA
     Dosage: FREQUENCY: QD EVERYDAY, DRUG: SANGULAR, LAST DOSE ON 21 APRIL 2009.
     Route: 048
  17. IBUPROFEN [Concomitant]
     Dosage: FREQUENCY: PRN, AS NEEDED, LAST DOSE ON 21 APRIL 2009.
     Route: 048
  18. DEPO-PROVERA [Concomitant]
     Route: 030
  19. TRIAMCINOLONE [Concomitant]
     Indication: DRY SKIN
     Dosage: FREQUENCY: PRN, AS NEEDED.
     Route: 061
  20. AMLODIPINE [Concomitant]
  21. LISINOPRIL [Concomitant]
  22. SAQUINAVIR [Concomitant]
  23. ASPIRIN [Concomitant]

REACTIONS (1)
  - CHEST PAIN [None]
